FAERS Safety Report 6241870-4 (Version None)
Quarter: 2009Q2

REPORT INFORMATION
  Report Type: 
  Country: None (occurrence: None)
  Receive Date: 20090623
  Receipt Date: 20090611
  Transmission Date: 20091009
  Serious: Yes (Death, Life-Threatening)
  Sender: FDA-Public Use
  Company Number: KR-PFIZER INC-2009226767

PATIENT
  Age: 37 Year

DRUGS (5)
  1. VORICONAZOLE [Suspect]
     Indication: ASPERGILLOSIS
     Dosage: 300 MG, 2X/DAY
     Route: 042
     Dates: start: 20070831, end: 20070904
  2. LANSOPRAZOLE [Concomitant]
     Indication: DYSPEPSIA
     Dosage: 15 MG PER DAY
     Route: 048
     Dates: end: 20070901
  3. SILYMARIN [Concomitant]
     Indication: PROPHYLAXIS
     Dosage: 280 MG PER DAY
     Route: 048
     Dates: end: 20070901
  4. CYCLOSPORINE [Concomitant]
     Indication: PROPHYLAXIS
     Dosage: 300 MG PER DAY
     Route: 048
     Dates: start: 20070817, end: 20070902
  5. AMBROXOL [Concomitant]
     Indication: RESPIRATORY DISORDER
     Dosage: 45 MG PER DAY
     Route: 042
     Dates: start: 20070820, end: 20070903

REACTIONS (2)
  - BLOOD CREATININE [None]
  - SEPTIC SHOCK [None]
